FAERS Safety Report 8439737-6 (Version None)
Quarter: 2012Q2

REPORT INFORMATION
  Report Type: 
  Country: None (occurrence: None)
  Receive Date: 20120615
  Receipt Date: 20120612
  Transmission Date: 20120825
  Serious: Yes (Life-Threatening, Hospitalization, Other)
  Sender: FDA-Public Use
  Company Number: IT-SANOFI-AVENTIS-2012SA039055

PATIENT
  Age: 49 Year
  Sex: Male

DRUGS (8)
  1. LEVOFLOXACIN [Suspect]
     Route: 048
     Dates: start: 20120509, end: 20120519
  2. LEUCOVORIN CALCIUM [Concomitant]
     Route: 042
     Dates: start: 20120511, end: 20120511
  3. ELOXATIN [Suspect]
     Indication: COLON CANCER
     Route: 042
     Dates: start: 20120509, end: 20120509
  4. ESOMEPRAZOLE MAGNESIUM [Concomitant]
  5. ASPIRIN [Suspect]
     Route: 048
     Dates: start: 20120101
  6. KETOROLAC TROMETHAMINE [Suspect]
     Route: 030
     Dates: start: 20120510, end: 20120510
  7. FLUOROURACIL [Concomitant]
     Route: 042
     Dates: start: 20120511, end: 20120511
  8. RAMIPRIL [Suspect]
     Route: 048
     Dates: start: 20120101, end: 20120509

REACTIONS (5)
  - HYPERKALAEMIA [None]
  - METABOLIC ACIDOSIS [None]
  - RENAL FAILURE ACUTE [None]
  - ANAEMIA [None]
  - INTRAVASCULAR HAEMOLYSIS [None]
